FAERS Safety Report 9834801 (Version 1)
Quarter: 2014Q1

REPORT INFORMATION
  Report Type: Spontaneous
  Country: US (occurrence: US)
  Receive Date: 20140122
  Receipt Date: 20140122
  Transmission Date: 20141002
  Serious: Yes (Other)
  Sender: FDA-Public Use
  Company Number: US-PFIZER INC-2014017444

PATIENT
  Sex: Female

DRUGS (3)
  1. LYRICA [Suspect]
     Indication: FIBROMYALGIA
     Dosage: 75 MG, 2X/DAY
  2. LYRICA [Suspect]
     Dosage: 100 MG, UNK
  3. LYRICA [Suspect]
     Dosage: 75 MG, UNK

REACTIONS (6)
  - Suicidal ideation [Not Recovered/Not Resolved]
  - Depression [Not Recovered/Not Resolved]
  - Activities of daily living impaired [Not Recovered/Not Resolved]
  - Emotional disorder [Not Recovered/Not Resolved]
  - Personality change [Not Recovered/Not Resolved]
  - Fatigue [Not Recovered/Not Resolved]
